FAERS Safety Report 9613420 (Version 1)
Quarter: 2013Q4

REPORT INFORMATION
  Report Type: Spontaneous
  Country: CA (occurrence: None)
  Receive Date: 20131008
  Receipt Date: 20131008
  Transmission Date: 20140711
  Serious: Yes (Hospitalization)
  Sender: FDA-Public Use
  Company Number: AUR-APL-2013-08061

PATIENT
  Age: 75 Year
  Sex: Female

DRUGS (4)
  1. GABAPENTIN [Suspect]
     Indication: FIBROMYALGIA
  2. GABAPENTIN [Suspect]
     Indication: POST HERPETIC NEURALGIA
  3. LORAZEPAM [Suspect]
     Indication: DEPRESSION
  4. SERTRALINE (SERTRALINE) [Concomitant]

REACTIONS (18)
  - Fall [None]
  - Disease recurrence [None]
  - Abdominal pain [None]
  - Headache [None]
  - Blood pressure increased [None]
  - Chills [None]
  - Cold sweat [None]
  - Nausea [None]
  - Insomnia [None]
  - Agitation [None]
  - Decreased appetite [None]
  - Drug withdrawal syndrome [None]
  - Hypokalaemia [None]
  - No therapeutic response [None]
  - Anxiety [None]
  - Renal impairment [None]
  - Hepatic enzyme increased [None]
  - Hyperhidrosis [None]
